FAERS Safety Report 11545973 (Version 1)
Quarter: 2015Q3

REPORT INFORMATION
  Report Type: Spontaneous
  Country: US (occurrence: US)
  Receive Date: 20150903
  Receipt Date: 20150903
  Transmission Date: 20151125
  Serious: Yes (Hospitalization, Other)
  Sender: FDA-Public Use
  Company Number: US-ELI_LILLY_AND_COMPANY-US201206000900

PATIENT
  Age: 78 Year
  Sex: Female

DRUGS (4)
  1. HUMALOG [Suspect]
     Active Substance: INSULIN LISPRO
     Dosage: 5 U, TID
  2. HUMALOG [Suspect]
     Active Substance: INSULIN LISPRO
     Indication: TYPE 1 DIABETES MELLITUS
     Dosage: UNK, QID
     Dates: start: 2000
  3. LANTUS [Concomitant]
     Active Substance: INSULIN GLARGINE
     Dosage: 12 U, EACH EVENING
  4. LANTUS [Concomitant]
     Active Substance: INSULIN GLARGINE
     Dosage: 6 U, QD

REACTIONS (6)
  - Visual impairment [Unknown]
  - Hypoglycaemic unconsciousness [Unknown]
  - Hallucination, visual [Unknown]
  - Tremor [Unknown]
  - Weight decreased [Unknown]
  - Cataract [Unknown]

NARRATIVE: CASE EVENT DATE: 201108
